FAERS Safety Report 16710069 (Version 1)
Quarter: 2019Q4

REPORT INFORMATION
  Report Type: Spontaneous
  Country: US (occurrence: US)
  Receive Date: 20190815
  Receipt Date: 20190815
  Transmission Date: 20200122
  Serious: No
  Sender: FDA-Public Use
  Company Number: None

PATIENT
  Age: 53 Year
  Sex: Female
  Weight: 108 kg

DRUGS (1)
  1. TALTZ [Suspect]
     Active Substance: IXEKIZUMAB
     Indication: PSORIASIS
     Dates: start: 20190730

REACTIONS (5)
  - Peripheral swelling [None]
  - Pruritus [None]
  - Pain in extremity [None]
  - Erythema [None]
  - Pyrexia [None]

NARRATIVE: CASE EVENT DATE: 20190810
